FAERS Safety Report 25032179 (Version 1)
Quarter: 2025Q1

REPORT INFORMATION
  Report Type: Spontaneous
  Country: IE (occurrence: IE)
  Receive Date: 20250303
  Receipt Date: 20250303
  Transmission Date: 20250409
  Serious: Yes (Other)
  Sender: MYLAN
  Company Number: IE-UCBSA-2025008588

PATIENT
  Sex: Female

DRUGS (44)
  1. LEVETIRACETAM [Suspect]
     Active Substance: LEVETIRACETAM
     Indication: Epilepsy
  2. LEVETIRACETAM [Suspect]
     Active Substance: LEVETIRACETAM
     Route: 065
  3. LEVETIRACETAM [Suspect]
     Active Substance: LEVETIRACETAM
     Route: 065
  4. LEVETIRACETAM [Suspect]
     Active Substance: LEVETIRACETAM
  5. ZONISAMIDE [Suspect]
     Active Substance: ZONISAMIDE
     Indication: Epilepsy
     Dosage: 200 (150?400), DAILY DOSE
  6. ZONISAMIDE [Suspect]
     Active Substance: ZONISAMIDE
     Dosage: 200 (150?400), DAILY DOSE
     Route: 065
  7. ZONISAMIDE [Suspect]
     Active Substance: ZONISAMIDE
     Dosage: 200 (150?400), DAILY DOSE
     Route: 065
  8. ZONISAMIDE [Suspect]
     Active Substance: ZONISAMIDE
     Dosage: 200 (150?400), DAILY DOSE
  9. ESLICARBAZEPINE [Suspect]
     Active Substance: ESLICARBAZEPINE
     Indication: Epilepsy
     Dosage: 800 (400?1600), DAILY DOSE
  10. ESLICARBAZEPINE [Suspect]
     Active Substance: ESLICARBAZEPINE
     Dosage: 800 (400?1600), DAILY DOSE
     Route: 065
  11. ESLICARBAZEPINE [Suspect]
     Active Substance: ESLICARBAZEPINE
     Dosage: 800 (400?1600), DAILY DOSE
     Route: 065
  12. ESLICARBAZEPINE [Suspect]
     Active Substance: ESLICARBAZEPINE
     Dosage: 800 (400?1600), DAILY DOSE
  13. BRIVARACETAM [Suspect]
     Active Substance: BRIVARACETAM
     Indication: Epilepsy
     Dosage: 350 (200?600), DAILY DOSE
  14. BRIVARACETAM [Suspect]
     Active Substance: BRIVARACETAM
     Dosage: 350 (200?600), DAILY DOSE
     Route: 065
  15. BRIVARACETAM [Suspect]
     Active Substance: BRIVARACETAM
     Dosage: 350 (200?600), DAILY DOSE
     Route: 065
  16. BRIVARACETAM [Suspect]
     Active Substance: BRIVARACETAM
     Dosage: 350 (200?600), DAILY DOSE
  17. LACOSAMIDE [Suspect]
     Active Substance: LACOSAMIDE
     Indication: Epilepsy
     Dosage: 350 (200?600), DAILY DOSE
  18. LACOSAMIDE [Suspect]
     Active Substance: LACOSAMIDE
     Dosage: 350 (200?600), DAILY DOSE
     Route: 065
  19. LACOSAMIDE [Suspect]
     Active Substance: LACOSAMIDE
     Dosage: 350 (200?600), DAILY DOSE
     Route: 065
  20. LACOSAMIDE [Suspect]
     Active Substance: LACOSAMIDE
     Dosage: 350 (200?600), DAILY DOSE
  21. PERAMPANEL [Concomitant]
     Active Substance: PERAMPANEL
     Indication: Epilepsy
  22. PERAMPANEL [Concomitant]
     Active Substance: PERAMPANEL
     Route: 065
  23. PERAMPANEL [Concomitant]
     Active Substance: PERAMPANEL
     Route: 065
  24. PERAMPANEL [Concomitant]
     Active Substance: PERAMPANEL
  25. LAMOTRIGINE [Concomitant]
     Active Substance: LAMOTRIGINE
     Indication: Epilepsy
  26. LAMOTRIGINE [Concomitant]
     Active Substance: LAMOTRIGINE
     Route: 065
  27. LAMOTRIGINE [Concomitant]
     Active Substance: LAMOTRIGINE
     Route: 065
  28. LAMOTRIGINE [Concomitant]
     Active Substance: LAMOTRIGINE
  29. CARBAMAZEPINE [Concomitant]
     Active Substance: CARBAMAZEPINE
     Indication: Epilepsy
  30. CARBAMAZEPINE [Concomitant]
     Active Substance: CARBAMAZEPINE
     Route: 065
  31. CARBAMAZEPINE [Concomitant]
     Active Substance: CARBAMAZEPINE
     Route: 065
  32. CARBAMAZEPINE [Concomitant]
     Active Substance: CARBAMAZEPINE
  33. PREGABALIN [Concomitant]
     Active Substance: PREGABALIN
     Indication: Epilepsy
  34. PREGABALIN [Concomitant]
     Active Substance: PREGABALIN
     Route: 065
  35. PREGABALIN [Concomitant]
     Active Substance: PREGABALIN
     Route: 065
  36. PREGABALIN [Concomitant]
     Active Substance: PREGABALIN
  37. TOPIRAMATE [Concomitant]
     Active Substance: TOPIRAMATE
     Indication: Epilepsy
  38. TOPIRAMATE [Concomitant]
     Active Substance: TOPIRAMATE
     Route: 065
  39. TOPIRAMATE [Concomitant]
     Active Substance: TOPIRAMATE
     Route: 065
  40. TOPIRAMATE [Concomitant]
     Active Substance: TOPIRAMATE
  41. FOLIC ACID [Concomitant]
     Active Substance: FOLIC ACID
     Indication: Product used for unknown indication
     Dosage: 5 MILLIGRAM, ONCE DAILY (QD)
  42. FOLIC ACID [Concomitant]
     Active Substance: FOLIC ACID
     Dosage: 5 MILLIGRAM, ONCE DAILY (QD)
     Route: 065
  43. FOLIC ACID [Concomitant]
     Active Substance: FOLIC ACID
     Dosage: 5 MILLIGRAM, ONCE DAILY (QD)
     Route: 065
  44. FOLIC ACID [Concomitant]
     Active Substance: FOLIC ACID
     Dosage: 5 MILLIGRAM, ONCE DAILY (QD)

REACTIONS (6)
  - Hyperemesis gravidarum [Unknown]
  - Gestational diabetes [Unknown]
  - Anaemia [Unknown]
  - Infection [Unknown]
  - Intentional product misuse [Unknown]
  - Maternal exposure during pregnancy [Unknown]
